FAERS Safety Report 17567842 (Version 1)
Quarter: 2020Q1

REPORT INFORMATION
  Report Type: Spontaneous
  Country: DE (occurrence: DE)
  Receive Date: 20200320
  Receipt Date: 20200320
  Transmission Date: 20200409
  Serious: Yes (Other)
  Sender: FDA-Public Use
  Company Number: DE-009507513-2004-08-0514

PATIENT
  Age: 76 Year
  Sex: Male

DRUGS (1)
  1. INTRON A [Suspect]
     Active Substance: INTERFERON ALFA-2B
     Indication: NODULAR MELANOMA
     Dosage: DOSE: 3 MIU TIW, DURATION: UNKNOWN
     Route: 058

REACTIONS (2)
  - Sarcoidosis [Recovered/Resolved]
  - Recurrent cancer [Unknown]
